FAERS Safety Report 13686606 (Version 1)
Quarter: 2017Q2

REPORT INFORMATION
  Report Type: Spontaneous
  Country: BR (occurrence: BR)
  Receive Date: 20170623
  Receipt Date: 20170623
  Transmission Date: 20170830
  Serious: Yes (Hospitalization)
  Sender: FDA-Public Use
  Company Number: BR-NAPPMUNDI-GBR-2017-0046220

PATIENT
  Sex: Male

DRUGS (10)
  1. LASIX [Concomitant]
     Active Substance: FUROSEMIDE
     Dosage: 40 UNK, UNK
  2. BETASERC                           /00141801/ [Concomitant]
     Active Substance: BETAHISTINE
  3. TADALAFIL [Concomitant]
     Active Substance: TADALAFIL
     Dosage: UNK UNK, PM
  4. NEBILET [Concomitant]
     Active Substance: NEBIVOLOL
     Dosage: 5 MG, AM
  5. LEXOTAN [Concomitant]
     Active Substance: BROMAZEPAM
     Dosage: 6 MG, NOCTE (BEFORE TO SLEEP)
  6. PREGABALIN. [Concomitant]
     Active Substance: PREGABALIN
  7. PRADAXA [Concomitant]
     Active Substance: DABIGATRAN ETEXILATE MESYLATE
     Dosage: UNK, BID (IN THE MORNING AND AT NIGHT)
  8. DIOVAN HCT [Concomitant]
     Active Substance: HYDROCHLOROTHIAZIDE\VALSARTAN
  9. LEVOID [Concomitant]
     Active Substance: LEVOTHYROXINE
  10. RESTIVA [Suspect]
     Active Substance: BUPRENORPHINE
     Indication: PAIN
     Dosage: UNK (10MG STRENGTH)
     Route: 062
     Dates: start: 2017

REACTIONS (3)
  - Disorientation [Unknown]
  - Pleural effusion [Unknown]
  - Azotaemia [Unknown]

NARRATIVE: CASE EVENT DATE: 2017
